FAERS Safety Report 5300543-2 (Version None)
Quarter: 2007Q2

REPORT INFORMATION
  Report Type: 
  Country: None (occurrence: None)
  Receive Date: 20070418
  Receipt Date: 20070405
  Transmission Date: 20071010
  Serious: Yes (Hospitalization, Other)
  Sender: FDA-Public Use
  Company Number: PHEH2007US04487

PATIENT
  Age: 49 Year
  Sex: Female

DRUGS (7)
  1. ZELNORM [Suspect]
     Dosage: 6 MG, BID
     Route: 048
     Dates: start: 20060101, end: 20070405
  2. TRAMADOL HCL [Concomitant]
     Indication: FIBROMYALGIA
     Route: 048
  3. GLUCOPHAGE [Concomitant]
     Indication: DIABETES MELLITUS
     Route: 048
  4. CENESTIN [Concomitant]
     Indication: HORMONE REPLACEMENT THERAPY
     Route: 048
  5. SINGULAIR [Concomitant]
     Indication: SINUS DISORDER
     Route: 048
  6. ACETYLSALICYLIC ACID SRT [Concomitant]
     Route: 048
  7. VITAMINS NOS [Concomitant]

REACTIONS (5)
  - CATHETERISATION CARDIAC ABNORMAL [None]
  - CORONARY ARTERY BYPASS [None]
  - CORONARY ARTERY OCCLUSION [None]
  - DYSPNOEA [None]
  - FATIGUE [None]
